FAERS Safety Report 5632900-9 (Version None)
Quarter: 2008Q1

REPORT INFORMATION
  Report Type: 
  Country: None (occurrence: None)
  Receive Date: 20080212
  Receipt Date: 20080125
  Transmission Date: 20080703
  Serious: Yes (Hospitalization)
  Sender: FDA-Public Use
  Company Number: DSA_30127_2007

PATIENT
  Sex: Female

DRUGS (3)
  1. LORAZEPAM [Suspect]
     Indication: DRUG USE FOR UNKNOWN INDICATION
     Dosage: 1 MG ^SITUATIONAL^ 4 TABLETS (EACH 1 MG) WITHIN 3 233KS SUBLINGUAL
     Route: 060
     Dates: end: 20070401
  2. CYMBALTA [Suspect]
     Indication: DEPRESSION
     Dosage: 120 MG QD ORAL
     Route: 048
     Dates: start: 20060630, end: 20070329
  3. FRAXIPARIN /00889603/ (FRAXIPARIN HEPARIN, CALCIUM SALT) [Suspect]
     Indication: DRUG USE FOR UNKNOWN INDICATION
     Dosage: DF
     Dates: start: 20070707

REACTIONS (7)
  - CAESAREAN SECTION [None]
  - DRUG EXPOSURE DURING PREGNANCY [None]
  - HAEMATOMA [None]
  - OLIGOHYDRAMNIOS [None]
  - PLACENTAL INSUFFICIENCY [None]
  - PREGNANCY [None]
  - PREMATURE LABOUR [None]
